FAERS Safety Report 9922836 (Version 3)
Quarter: 2014Q2

REPORT INFORMATION
  Report Type: Report from Study
  Country: FR (occurrence: FR)
  Receive Date: 20140225
  Receipt Date: 20140530
  Transmission Date: 20141212
  Serious: Yes (Hospitalization)
  Sender: FDA-Public Use
  Company Number: FR-B.I. PHARMACEUTICALS,INC./RIDGEFIELD-2011-FF-00621FF

PATIENT
  Age: 71 Year
  Sex: Female
  Weight: 83.7 kg

DRUGS (6)
  1. BIBW 2992 [Suspect]
     Indication: LUNG ADENOCARCINOMA
     Dosage: 40 MG
     Route: 048
     Dates: start: 20100907, end: 20140217
  2. KARDEGIC [Concomitant]
     Indication: HYPERTENSION
     Route: 048
     Dates: start: 201306
  3. KARDEGIC [Concomitant]
     Route: 048
     Dates: start: 20110312
  4. LODOZ [Concomitant]
     Indication: HYPERTENSION
     Dosage: 10 MG
     Route: 048
     Dates: start: 20110312
  5. ZANIDIP [Concomitant]
     Indication: HYPERTENSION
     Dosage: 10 MG
     Route: 048
     Dates: start: 20110312
  6. PARACETAMOL [Concomitant]
     Route: 048

REACTIONS (2)
  - Epilepsy [Recovered/Resolved]
  - Epilepsy [Recovered/Resolved]
